FAERS Safety Report 5159557-8 (Version None)
Quarter: 2006Q4

REPORT INFORMATION
  Report Type: 
  Country: None (occurrence: None)
  Receive Date: 20061120
  Receipt Date: 20061108
  Transmission Date: 20070319
  Serious: Yes (Hospitalization)
  Sender: FDA-Public Use
  Company Number: 2006SP005933

PATIENT
  Age: 48 Year
  Sex: Male
  Weight: 88.5 kg

DRUGS (3)
  1. PEGATRON    (PEGYLATED INTERFERON ALFA-2B W/RIBAVIRIN) [Suspect]
     Indication: HEPATITIS C
     Dosage: 150 MCG; QW; SC,
     Route: 058
     Dates: start: 20060519
  2. PEGATRON (PEGYLATED INTERFERON ALFA-2B W/RIBAVIRIN) [Suspect]
     Indication: HEPATITIS C
     Dosage: 1200 MG, QD; PO
     Route: 048
     Dates: start: 20060519
  3. SERTRALINE [Suspect]
     Indication: DRUG USE FOR UNKNOWN INDICATION
     Dosage: 50 MG; QD; PO
     Route: 048
     Dates: start: 20061106

REACTIONS (1)
  - ECZEMA [None]
